FAERS Safety Report 15532956 (Version 8)
Quarter: 2019Q4

REPORT INFORMATION
  Report Type: Spontaneous
  Country: PT (occurrence: PT)
  Receive Date: 20181019
  Receipt Date: 20191127
  Transmission Date: 20200122
  Serious: Yes (Hospitalization, Other)
  Sender: FDA-Public Use
  Company Number: PT-MYLANLABS-2018M1078084

PATIENT
  Age: 26 Year
  Sex: Male

DRUGS (23)
  1. CLENBUTEROL [Suspect]
     Active Substance: CLENBUTEROL
     Indication: PRODUCT USED FOR UNKNOWN INDICATION
     Dosage: TID, 6 WEEKS CYCLE BEFORE COMPETITION
  2. SUSTANON [Suspect]
     Active Substance: TESTOSTERONE
     Dosage: 500 MILLIGRAM, QW
     Route: 065
  3. CABERGOLINE. [Suspect]
     Active Substance: CABERGOLINE
     Indication: PRODUCT USED FOR UNKNOWN INDICATION
     Dosage: 6 WEEKS CYCLE BEFORE COMPETITION
     Route: 065
  4. ALTIZIDE [Suspect]
     Active Substance: ALTHIAZIDE
     Indication: PRODUCT USED FOR UNKNOWN INDICATION
     Dosage: ON THE DAY OF COMPETITION
  5. ANASTROZOLE. [Suspect]
     Active Substance: ANASTROZOLE
     Indication: PRODUCT USED FOR UNKNOWN INDICATION
     Dosage: 6 WEEKS CYCLE BEFORE COMPETITION
     Route: 048
  6. LIOTHYRONINE [Suspect]
     Active Substance: LIOTHYRONINE
     Dosage: 50 MICROGRAM, QD
     Route: 065
  7. LEVOTHYROXINE. [Suspect]
     Active Substance: LEVOTHYROXINE
     Dosage: 100 MICROGRAM, QD
     Route: 065
  8. SPIRONOLACTONE. [Suspect]
     Active Substance: SPIRONOLACTONE
     Indication: PRODUCT USED FOR UNKNOWN INDICATION
     Dosage: ON THE DAY OF COMPETITION
  9. LIOTHYRONINE [Suspect]
     Active Substance: LIOTHYRONINE
     Indication: PRODUCT USED FOR UNKNOWN INDICATION
     Dosage: 6 WEEKS CYCLE BEFORE COMPETITION
  10. TESTOSTERONE. [Suspect]
     Active Substance: TESTOSTERONE
     Dosage: 6 WEEKS CYCLE BEFORE COMPETITION
  11. DROSTANOLONE PROPIONATE [Suspect]
     Active Substance: DROMOSTANOLONE PROPIONATE
     Indication: PRODUCT USED FOR UNKNOWN INDICATION
     Dosage: 6 WEEKS CYCLE BEFORE THE COMPETITION
     Route: 065
  12. FLUOXYMESTERONE [Suspect]
     Active Substance: FLUOXYMESTERONE
     Indication: PRODUCT USED FOR UNKNOWN INDICATION
     Dosage: 6 WEEKS CYCLE BEFORE COMPETITION
     Route: 065
  13. BALIDON                            /00440801/ [Suspect]
     Active Substance: TRIAZOLAM
     Indication: PRODUCT USED FOR UNKNOWN INDICATION
     Dosage: 6 WEEKS CYCLE BEFORE COMPETITION
  14. STANOZOLOL [Suspect]
     Active Substance: STANOZOLOL
     Indication: PRODUCT USED FOR UNKNOWN INDICATION
     Dosage: 6 WEEKS CYCLE BEFORE COMPETITION
     Route: 065
  15. TESTOSTERONE CYPIONATE. [Suspect]
     Active Substance: TESTOSTERONE CYPIONATE
     Indication: PRODUCT USED FOR UNKNOWN INDICATION
     Dosage: 6 WEEKS CYCLE BEFORE COMPETITION
     Route: 065
  16. SUSTANON [Suspect]
     Active Substance: TESTOSTERONE
     Indication: PRODUCT USED FOR UNKNOWN INDICATION
     Dosage: 6 WEEKS CYCLE BEFORE COMPETITION
  17. TESTOSTERONE ENANTHATE. [Suspect]
     Active Substance: TESTOSTERONE ENANTHATE
     Indication: PRODUCT USED FOR UNKNOWN INDICATION
     Dosage: 6 WEEKS CYCLE BEFORE THE COMPETITION
     Route: 065
  18. TESTOSTERONE. [Suspect]
     Active Substance: TESTOSTERONE
     Indication: PRODUCT USED FOR UNKNOWN INDICATION
     Dosage: 6 WEEKS CYCLE BEFORE COMPETITION
  19. TRENBOLONE [Suspect]
     Active Substance: TRENBOLONE
     Indication: PRODUCT USED FOR UNKNOWN INDICATION
     Dosage: 6 WEEKS CYCLE BEFORE COMPETITION
     Route: 065
  20. LEVOTHYROXINE. [Suspect]
     Active Substance: LEVOTHYROXINE
     Indication: PRODUCT USED FOR UNKNOWN INDICATION
     Dosage: 100 MCG ID, 6 WEEKS CYCLE BEFORE THE COMPETITION
  21. LEVOTHYROXINE. [Suspect]
     Active Substance: LEVOTHYROXINE
     Dosage: 6 WEEKS CYCLE BEFORE COMPETITION
  22. MESTEROLONE [Suspect]
     Active Substance: MESTEROLONE
     Indication: PRODUCT USED FOR UNKNOWN INDICATION
     Dosage: 25 MG 4-6ID, 6 WKCYCLE BEFORE COMPETITION
  23. SPIRONOLACTONE ALTIZIDE ARROW [Concomitant]
     Active Substance: ALTHIAZIDE\SPIRONOLACTONE
     Indication: PRODUCT USED FOR UNKNOWN INDICATION

REACTIONS (12)
  - Autoimmune thyroiditis [Recovered/Resolved]
  - Haematocrit increased [Unknown]
  - Off label use [Unknown]
  - Product use in unapproved indication [Unknown]
  - Intentional product misuse [Unknown]
  - Blood glucose increased [Unknown]
  - Product use issue [Unknown]
  - Glucose tolerance decreased [Unknown]
  - Drug abuse [Unknown]
  - Performance enhancing product use [Unknown]
  - Secondary hypogonadism [Unknown]
  - Diabetes mellitus [Recovered/Resolved]
